FAERS Safety Report 5859324-3 (Version None)
Quarter: 2008Q3

REPORT INFORMATION
  Report Type: 
  Country: None (occurrence: None)
  Receive Date: 20080825
  Receipt Date: 20080730
  Transmission Date: 20090109
  Serious: Yes (Other)
  Sender: FDA-Public Use
  Company Number: 001#1#2008-00457

PATIENT
  Age: 53 Year
  Sex: Male

DRUGS (2)
  1. NEUPRO [Suspect]
     Indication: PARKINSON'S DISEASE
     Dosage: 8 MG/24H (8 MG/24H 1 IN 1 DAY(S)) TRANSDERMAL
     Route: 062
     Dates: start: 20070501
  2. RASAGILINE [Concomitant]

REACTIONS (2)
  - DRUG EFFECT DECREASED [None]
  - PHARMACEUTICAL PRODUCT COMPLAINT [None]
